FAERS Safety Report 11975903 (Version 1)
Quarter: 2016Q1

REPORT INFORMATION
  Report Type: Spontaneous
  Country: US (occurrence: US)
  Receive Date: 20160129
  Receipt Date: 20160129
  Transmission Date: 20160526
  Serious: No
  Sender: FDA-Public Use
  Company Number: US-TEVA-575665USA

PATIENT
  Sex: Female
  Weight: 72.64 kg

DRUGS (2)
  1. NITROFURANTOIN. [Suspect]
     Active Substance: NITROFURANTOIN
     Indication: URINARY TRACT INFECTION
     Route: 065
  2. NORTRIPTYLINE [Suspect]
     Active Substance: NORTRIPTYLINE
     Indication: VAGINAL INFECTION
     Route: 065

REACTIONS (3)
  - Drug ineffective [Unknown]
  - Burning sensation [Unknown]
  - Product use issue [Unknown]
